FAERS Safety Report 14496673 (Version 1)
Quarter: 2018Q1

REPORT INFORMATION
  Report Type: Spontaneous
  Country: US (occurrence: US)
  Receive Date: 20180206
  Receipt Date: 20180206
  Transmission Date: 20180509
  Serious: Yes (Other)
  Sender: FDA-Public Use
  Company Number: None

PATIENT
  Age: 36 Year
  Sex: Male
  Weight: 78.93 kg

DRUGS (1)
  1. ATOMOXETINE HCL 40MG CAP HCL [Suspect]
     Active Substance: ATOMOXETINE HYDROCHLORIDE
     Indication: ATTENTION DEFICIT/HYPERACTIVITY DISORDER
     Route: 048
     Dates: start: 20170817, end: 20171010

REACTIONS (8)
  - Hyperhidrosis [None]
  - Dry mouth [None]
  - Insomnia [None]
  - Palpitations [None]
  - Arthralgia [None]
  - Product substitution issue [None]
  - Chest discomfort [None]
  - Decreased appetite [None]

NARRATIVE: CASE EVENT DATE: 2018
